FAERS Safety Report 6128730-4 (Version None)
Quarter: 2009Q1

REPORT INFORMATION
  Report Type: 
  Country: None (occurrence: None)
  Receive Date: 20090323
  Receipt Date: 20090311
  Transmission Date: 20090719
  Serious: Yes (Other)
  Sender: FDA-Public Use
  Company Number: US-PFIZER INC-2008151632

PATIENT
  Sex: Female
  Weight: 93.424 kg

DRUGS (2)
  1. GEODON [Suspect]
     Indication: PSYCHOTIC DISORDER
     Dosage: 160 MG, 1X/DAY
     Route: 048
     Dates: start: 20080721
  2. KLONOPIN [Concomitant]
     Dosage: 2 MG, 1X/DAY

REACTIONS (3)
  - DRUG INTOLERANCE [None]
  - SEDATION [None]
  - TARDIVE DYSKINESIA [None]
